FAERS Safety Report 15748017 (Version 1)
Quarter: 2018Q4

REPORT INFORMATION
  Report Type: Spontaneous
  Country: FR (occurrence: FR)
  Receive Date: 20181221
  Receipt Date: 20181221
  Transmission Date: 20190205
  Serious: Yes (Hospitalization)
  Sender: FDA-Public Use
  Company Number: FR-SUN PHARMACEUTICAL INDUSTRIES LTD-2018RR-194246

PATIENT
  Age: 15 Year
  Sex: Female
  Weight: 90 kg

DRUGS (3)
  1. NAPROXENE [Suspect]
     Active Substance: NAPROXEN
     Indication: TOXICITY TO VARIOUS AGENTS
     Dosage: IN TOTAL
     Route: 048
     Dates: start: 20180415, end: 20180415
  2. STRESAM, GELULE [Suspect]
     Active Substance: ETIFOXINE HYDROCHLORIDE
     Indication: TOXICITY TO VARIOUS AGENTS
     Dosage: IN TOTAL
     Route: 048
     Dates: start: 20180415, end: 20180415
  3. PARACETAMOL [Suspect]
     Active Substance: ACETAMINOPHEN
     Indication: TOXICITY TO VARIOUS AGENTS
     Dosage: IN TOTAL
     Route: 048
     Dates: start: 20180415, end: 20180415

REACTIONS (5)
  - Toxicity to various agents [Recovered/Resolved]
  - Vomiting [Recovered/Resolved]
  - Somnolence [Recovered/Resolved]
  - Abdominal pain [Recovered/Resolved]
  - Prothrombin time ratio decreased [Recovered/Resolved]

NARRATIVE: CASE EVENT DATE: 20180415
